FAERS Safety Report 7099953-5 (Version None)
Quarter: 2010Q4

REPORT INFORMATION
  Report Type: 
  Country: None (occurrence: None)
  Receive Date: 20101112
  Receipt Date: 20101103
  Transmission Date: 20110411
  Serious: Yes (Other)
  Sender: FDA-Public Use
  Company Number: US-PURDUE-USA-2010-0053038

PATIENT
  Sex: Female

DRUGS (1)
  1. OXYCONTIN [Suspect]
     Indication: PAIN
     Dosage: 40 MG, BID + HS
     Dates: start: 20101012

REACTIONS (4)
  - BACK INJURY [None]
  - FALL [None]
  - JOINT SPRAIN [None]
  - LOWER LIMB FRACTURE [None]
